FAERS Safety Report 7518558-2 (Version None)
Quarter: 2011Q2

REPORT INFORMATION
  Report Type: 
  Country: None (occurrence: None)
  Receive Date: 20110601
  Receipt Date: 20110601
  Transmission Date: 20111010
  Serious: Yes (Other)
  Sender: FDA-Public Use
  Company Number: None

PATIENT

DRUGS (2)
  1. AMBIEN CR 12.5 MG AMBIEN [Concomitant]
     Indication: CIRCADIAN RHYTHM SLEEP DISORDER
  2. ZOLPIDEM TARTRATE [Suspect]
     Indication: INSOMNIA
     Dates: start: 20110201, end: 20110529

REACTIONS (9)
  - AMNESIA [None]
  - JUDGEMENT IMPAIRED [None]
  - DRUG TOLERANCE INCREASED [None]
  - INCORRECT DOSE ADMINISTERED [None]
  - MYALGIA [None]
  - SCRATCH [None]
  - CONTUSION [None]
  - VICTIM OF CRIME [None]
  - LACERATION [None]
